FAERS Safety Report 25208191 (Version 1)
Quarter: 2025Q2

REPORT INFORMATION
  Report Type: Spontaneous
  Country: US (occurrence: US)
  Receive Date: 20250417
  Receipt Date: 20250417
  Transmission Date: 20250716
  Serious: Yes (Other)
  Sender: STALLERGENES
  Company Number: US-STALCOR-2025-AER-01050

PATIENT
  Age: 33 Year
  Sex: Female
  Weight: 74.38 kg

DRUGS (83)
  1. WHITE ASH [Suspect]
     Active Substance: FRAXINUS AMERICANA POLLEN
     Indication: Seasonal allergy
     Route: 058
     Dates: start: 20210603
  2. WHITE ASH [Suspect]
     Active Substance: FRAXINUS AMERICANA POLLEN
     Indication: Allergy to animal
     Route: 058
     Dates: start: 20241017
  3. WHITE ASH [Suspect]
     Active Substance: FRAXINUS AMERICANA POLLEN
     Indication: Dust allergy
  4. BETULA NIGRA POLLEN [Suspect]
     Active Substance: BETULA NIGRA POLLEN
     Indication: Seasonal allergy
     Route: 058
     Dates: start: 20210603
  5. BETULA NIGRA POLLEN [Suspect]
     Active Substance: BETULA NIGRA POLLEN
     Indication: Allergy to animal
     Route: 058
     Dates: start: 20241017
  6. BETULA NIGRA POLLEN [Suspect]
     Active Substance: BETULA NIGRA POLLEN
     Indication: Dust allergy
  7. RED CEDAR [Suspect]
     Active Substance: JUNIPERUS VIRGINIANA POLLEN
     Indication: Seasonal allergy
     Route: 058
     Dates: start: 20210603
  8. RED CEDAR [Suspect]
     Active Substance: JUNIPERUS VIRGINIANA POLLEN
     Indication: Allergy to animal
     Route: 058
     Dates: start: 20241017
  9. RED CEDAR [Suspect]
     Active Substance: JUNIPERUS VIRGINIANA POLLEN
     Indication: Dust allergy
  10. EASTERN COTTONWOOD POLLEN [Suspect]
     Active Substance: POPULUS DELTOIDES POLLEN
     Indication: Seasonal allergy
     Route: 058
     Dates: start: 20210603
  11. EASTERN COTTONWOOD POLLEN [Suspect]
     Active Substance: POPULUS DELTOIDES POLLEN
     Indication: Allergy to animal
     Route: 058
     Dates: start: 20241017
  12. EASTERN COTTONWOOD POLLEN [Suspect]
     Active Substance: POPULUS DELTOIDES POLLEN
     Indication: Dust allergy
  13. WHITE HICKORY [Suspect]
     Active Substance: CARYA TOMENTOSA POLLEN
     Indication: Seasonal allergy
     Route: 058
     Dates: start: 20210603
  14. WHITE HICKORY [Suspect]
     Active Substance: CARYA TOMENTOSA POLLEN
     Indication: Allergy to animal
     Route: 058
     Dates: start: 20241017
  15. WHITE HICKORY [Suspect]
     Active Substance: CARYA TOMENTOSA POLLEN
     Indication: Dust allergy
  16. MAPLE BOX ELDER POLLEN MIX [Suspect]
     Active Substance: ACER NEGUNDO POLLEN\ACER SACCHARUM POLLEN
     Indication: Seasonal allergy
     Route: 058
     Dates: start: 20210603
  17. MAPLE BOX ELDER POLLEN MIX [Suspect]
     Active Substance: ACER NEGUNDO POLLEN\ACER SACCHARUM POLLEN
     Indication: Allergy to animal
     Route: 058
     Dates: start: 20250219
  18. MAPLE BOX ELDER POLLEN MIX [Suspect]
     Active Substance: ACER NEGUNDO POLLEN\ACER SACCHARUM POLLEN
     Indication: Dust allergy
  19. RED MULBERRY [Suspect]
     Active Substance: MORUS RUBRA POLLEN
     Indication: Seasonal allergy
     Route: 058
     Dates: start: 20210603
  20. RED MULBERRY [Suspect]
     Active Substance: MORUS RUBRA POLLEN
     Indication: Allergy to animal
     Route: 058
     Dates: start: 20241017
  21. RED MULBERRY [Suspect]
     Active Substance: MORUS RUBRA POLLEN
     Indication: Dust allergy
  22. EASTERN OAK POLLEN MIX [Suspect]
     Active Substance: QUERCUS ALBA POLLEN\QUERCUS RUBRA POLLEN\QUERCUS VELUTINA POLLEN
     Indication: Seasonal allergy
     Route: 058
     Dates: start: 20210603
  23. EASTERN OAK POLLEN MIX [Suspect]
     Active Substance: QUERCUS ALBA POLLEN\QUERCUS RUBRA POLLEN\QUERCUS VELUTINA POLLEN
     Indication: Allergy to animal
     Route: 058
     Dates: start: 20241017
  24. EASTERN OAK POLLEN MIX [Suspect]
     Active Substance: QUERCUS ALBA POLLEN\QUERCUS RUBRA POLLEN\QUERCUS VELUTINA POLLEN
     Indication: Dust allergy
  25. RAGWEED MIXTURE [Suspect]
     Active Substance: AMBROSIA ARTEMISIIFOLIA POLLEN\AMBROSIA BIDENTATA POLLEN\AMBROSIA PSILOSTACHYA POLLEN\AMBROSIA TRIFI
     Indication: Seasonal allergy
     Route: 058
     Dates: start: 20210603
  26. RAGWEED MIXTURE [Suspect]
     Active Substance: AMBROSIA ARTEMISIIFOLIA POLLEN\AMBROSIA BIDENTATA POLLEN\AMBROSIA PSILOSTACHYA POLLEN\AMBROSIA TRIFI
     Indication: Allergy to animal
     Route: 058
     Dates: start: 20241017
  27. RAGWEED MIXTURE [Suspect]
     Active Substance: AMBROSIA ARTEMISIIFOLIA POLLEN\AMBROSIA BIDENTATA POLLEN\AMBROSIA PSILOSTACHYA POLLEN\AMBROSIA TRIFI
     Indication: Dust allergy
  28. EAST SYCAMORE [Suspect]
     Active Substance: PLATANUS OCCIDENTALIS POLLEN
     Indication: Seasonal allergy
     Route: 058
     Dates: start: 20210603
  29. EAST SYCAMORE [Suspect]
     Active Substance: PLATANUS OCCIDENTALIS POLLEN
     Indication: Allergy to animal
     Route: 058
     Dates: start: 20241017
  30. EAST SYCAMORE [Suspect]
     Active Substance: PLATANUS OCCIDENTALIS POLLEN
     Indication: Dust allergy
  31. CYNODON DACTYLON POLLEN [Suspect]
     Active Substance: CYNODON DACTYLON POLLEN
     Indication: Seasonal allergy
     Route: 058
     Dates: start: 20210603
  32. CYNODON DACTYLON POLLEN [Suspect]
     Active Substance: CYNODON DACTYLON POLLEN
     Indication: Allergy to animal
     Route: 058
     Dates: start: 20241017
  33. CYNODON DACTYLON POLLEN [Suspect]
     Active Substance: CYNODON DACTYLON POLLEN
     Indication: Dust allergy
  34. SORREL/DOCK MIX [Suspect]
     Active Substance: RUMEX ACETOSELLA WHOLE\RUMEX CRISPUS
     Indication: Seasonal allergy
     Route: 058
     Dates: start: 20210603
  35. SORREL/DOCK MIX [Suspect]
     Active Substance: RUMEX ACETOSELLA WHOLE\RUMEX CRISPUS
     Indication: Allergy to animal
     Route: 058
     Dates: start: 20241017
  36. SORREL/DOCK MIX [Suspect]
     Active Substance: RUMEX ACETOSELLA WHOLE\RUMEX CRISPUS
     Indication: Dust allergy
  37. DERMATOPHAGOIDES FARINAE\DERMATOPHAGOIDES PTERONYSSINUS [Suspect]
     Active Substance: DERMATOPHAGOIDES FARINAE\DERMATOPHAGOIDES PTERONYSSINUS
     Indication: Seasonal allergy
     Route: 058
     Dates: start: 20210603
  38. DERMATOPHAGOIDES FARINAE\DERMATOPHAGOIDES PTERONYSSINUS [Suspect]
     Active Substance: DERMATOPHAGOIDES FARINAE\DERMATOPHAGOIDES PTERONYSSINUS
     Indication: Allergy to animal
     Route: 058
     Dates: start: 20241017
  39. DERMATOPHAGOIDES FARINAE\DERMATOPHAGOIDES PTERONYSSINUS [Suspect]
     Active Substance: DERMATOPHAGOIDES FARINAE\DERMATOPHAGOIDES PTERONYSSINUS
     Indication: Dust allergy
  40. ENGLISH PLANTAIN [Suspect]
     Active Substance: PLANTAGO LANCEOLATA POLLEN
     Indication: Seasonal allergy
     Route: 058
     Dates: start: 20210603
  41. ENGLISH PLANTAIN [Suspect]
     Active Substance: PLANTAGO LANCEOLATA POLLEN
     Indication: Allergy to animal
     Route: 058
     Dates: start: 20241017
  42. ENGLISH PLANTAIN [Suspect]
     Active Substance: PLANTAGO LANCEOLATA POLLEN
     Indication: Dust allergy
  43. HORSE EPITHELIA [Suspect]
     Active Substance: EQUUS CABALLUS SKIN
     Indication: Seasonal allergy
     Route: 058
     Dates: start: 20210603
  44. HORSE EPITHELIA [Suspect]
     Active Substance: EQUUS CABALLUS SKIN
     Indication: Allergy to animal
     Route: 058
     Dates: start: 20241017
  45. HORSE EPITHELIA [Suspect]
     Active Substance: EQUUS CABALLUS SKIN
     Indication: Dust allergy
  46. JOHNSON GRASS [Suspect]
     Active Substance: SORGHUM HALEPENSE POLLEN
     Indication: Seasonal allergy
     Route: 058
     Dates: start: 20210603
  47. JOHNSON GRASS [Suspect]
     Active Substance: SORGHUM HALEPENSE POLLEN
     Indication: Allergy to animal
     Route: 058
     Dates: start: 20241017
  48. JOHNSON GRASS [Suspect]
     Active Substance: SORGHUM HALEPENSE POLLEN
     Indication: Dust allergy
  49. AGROSTIS GIGANTEA POLLEN\DACTYLIS GLOMERATA POLLEN\PHLEUM PRATENSE POL [Suspect]
     Active Substance: AGROSTIS GIGANTEA POLLEN\DACTYLIS GLOMERATA POLLEN\PHLEUM PRATENSE POLLEN\POA PRATENSIS POLLEN
     Indication: Seasonal allergy
     Route: 058
     Dates: start: 20210603
  50. AGROSTIS GIGANTEA POLLEN\DACTYLIS GLOMERATA POLLEN\PHLEUM PRATENSE POL [Suspect]
     Active Substance: AGROSTIS GIGANTEA POLLEN\DACTYLIS GLOMERATA POLLEN\PHLEUM PRATENSE POLLEN\POA PRATENSIS POLLEN
     Indication: Allergy to animal
     Route: 058
     Dates: start: 20241017
  51. AGROSTIS GIGANTEA POLLEN\DACTYLIS GLOMERATA POLLEN\PHLEUM PRATENSE POL [Suspect]
     Active Substance: AGROSTIS GIGANTEA POLLEN\DACTYLIS GLOMERATA POLLEN\PHLEUM PRATENSE POLLEN\POA PRATENSIS POLLEN
     Indication: Dust allergy
  52. LAMB QUARTERS [Suspect]
     Active Substance: CHENOPODIUM ALBUM POLLEN
     Indication: Seasonal allergy
     Route: 058
     Dates: start: 20210603
  53. LAMB QUARTERS [Suspect]
     Active Substance: CHENOPODIUM ALBUM POLLEN
     Indication: Allergy to animal
     Route: 058
     Dates: start: 20241017
  54. LAMB QUARTERS [Suspect]
     Active Substance: CHENOPODIUM ALBUM POLLEN
     Indication: Dust allergy
  55. NETTLE [Suspect]
     Active Substance: URTICA DIOICA POLLEN
     Indication: Seasonal allergy
     Route: 058
     Dates: start: 20210603
  56. NETTLE [Suspect]
     Active Substance: URTICA DIOICA POLLEN
     Indication: Allergy to animal
     Route: 058
     Dates: start: 20241017
  57. NETTLE [Suspect]
     Active Substance: URTICA DIOICA POLLEN
     Indication: Dust allergy
  58. ROUGH PIGWEED [Suspect]
     Active Substance: AMARANTHUS RETROFLEXUS POLLEN
     Indication: Seasonal allergy
     Route: 058
     Dates: start: 20210603
  59. ROUGH PIGWEED [Suspect]
     Active Substance: AMARANTHUS RETROFLEXUS POLLEN
     Indication: Allergy to animal
     Route: 058
     Dates: start: 20241017
  60. ROUGH PIGWEED [Suspect]
     Active Substance: AMARANTHUS RETROFLEXUS POLLEN
     Indication: Dust allergy
  61. ALTERNARIA [Suspect]
     Active Substance: ALTERNARIA ALTERNATA
     Indication: Seasonal allergy
     Route: 058
     Dates: start: 20210603
  62. ALTERNARIA [Suspect]
     Active Substance: ALTERNARIA ALTERNATA
     Indication: Allergy to animal
     Route: 058
     Dates: start: 20241017
  63. ALTERNARIA [Suspect]
     Active Substance: ALTERNARIA ALTERNATA
     Indication: Dust allergy
  64. ASPERGILLUS FUMIGATUS [Suspect]
     Active Substance: ASPERGILLUS FUMIGATUS
     Indication: Seasonal allergy
     Route: 058
     Dates: start: 20210603
  65. ASPERGILLUS FUMIGATUS [Suspect]
     Active Substance: ASPERGILLUS FUMIGATUS
     Indication: Allergy to animal
     Route: 058
     Dates: start: 20241017
  66. ASPERGILLUS FUMIGATUS [Suspect]
     Active Substance: ASPERGILLUS FUMIGATUS
     Indication: Dust allergy
  67. CAT HAIR [Suspect]
     Active Substance: FELIS CATUS HAIR
     Indication: Seasonal allergy
     Route: 058
     Dates: start: 20210603
  68. CAT HAIR [Suspect]
     Active Substance: FELIS CATUS HAIR
     Route: 058
     Dates: start: 20241017
  69. CLADOSPORIUM HERBARUM [Suspect]
     Active Substance: CLADOSPORIUM HERBARUM
     Indication: Seasonal allergy
     Route: 058
     Dates: start: 20210603
  70. CLADOSPORIUM HERBARUM [Suspect]
     Active Substance: CLADOSPORIUM HERBARUM
     Indication: Allergy to animal
     Route: 058
     Dates: start: 20241017
  71. CLADOSPORIUM HERBARUM [Suspect]
     Active Substance: CLADOSPORIUM HERBARUM
     Indication: Dust allergy
  72. CLADOSPORIUM SPHAEROSPERMUM [Suspect]
     Active Substance: CLADOSPORIUM SPHAEROSPERMUM
     Indication: Seasonal allergy
     Route: 058
     Dates: start: 20210603
  73. CLADOSPORIUM SPHAEROSPERMUM [Suspect]
     Active Substance: CLADOSPORIUM SPHAEROSPERMUM
     Indication: Allergy to animal
     Route: 058
     Dates: start: 20241017
  74. CLADOSPORIUM SPHAEROSPERMUM [Suspect]
     Active Substance: CLADOSPORIUM SPHAEROSPERMUM
     Indication: Dust allergy
  75. ALLERGENIC EXTRACT- COCKROACH PERIPLANETA AMERICANA [Suspect]
     Active Substance: ALLERGENIC EXTRACT- COCKROACH PERIPLANETA AMERICANA
     Indication: Seasonal allergy
     Route: 058
     Dates: start: 20210603
  76. ALLERGENIC EXTRACT- COCKROACH PERIPLANETA AMERICANA [Suspect]
     Active Substance: ALLERGENIC EXTRACT- COCKROACH PERIPLANETA AMERICANA
     Indication: Allergy to animal
     Route: 058
     Dates: start: 20241017
  77. ALLERGENIC EXTRACT- COCKROACH PERIPLANETA AMERICANA [Suspect]
     Active Substance: ALLERGENIC EXTRACT- COCKROACH PERIPLANETA AMERICANA
     Indication: Dust allergy
  78. PENICILLIUM CHRYSOGENUM VAR. CHRYSOGENUM [Suspect]
     Active Substance: PENICILLIUM CHRYSOGENUM VAR. CHRYSOGENUM
     Indication: Seasonal allergy
     Route: 058
     Dates: start: 20210603
  79. PENICILLIUM CHRYSOGENUM VAR. CHRYSOGENUM [Suspect]
     Active Substance: PENICILLIUM CHRYSOGENUM VAR. CHRYSOGENUM
     Indication: Allergy to animal
     Route: 058
     Dates: start: 20241017
  80. PENICILLIUM CHRYSOGENUM VAR. CHRYSOGENUM [Suspect]
     Active Substance: PENICILLIUM CHRYSOGENUM VAR. CHRYSOGENUM
     Indication: Dust allergy
  81. UNSPECIFIED INGREDIENT [Suspect]
     Active Substance: UNSPECIFIED INGREDIENT
     Indication: Seasonal allergy
     Route: 058
     Dates: start: 20210603
  82. UNSPECIFIED INGREDIENT [Suspect]
     Active Substance: UNSPECIFIED INGREDIENT
     Indication: Allergy to animal
     Route: 058
     Dates: start: 20241017
  83. UNSPECIFIED INGREDIENT [Suspect]
     Active Substance: UNSPECIFIED INGREDIENT
     Indication: Dust allergy

REACTIONS (5)
  - Chest discomfort [Recovered/Resolved]
  - Nasal congestion [Recovered/Resolved]
  - Wheezing [Recovered/Resolved]
  - Throat tightness [Recovered/Resolved]
  - Throat irritation [Recovered/Resolved]

NARRATIVE: CASE EVENT DATE: 20250219
